FAERS Safety Report 9672001 (Version 3)
Quarter: 2014Q1

REPORT INFORMATION
  Report Type: Spontaneous
  Country: US (occurrence: US)
  Receive Date: 20131106
  Receipt Date: 20140122
  Transmission Date: 20141002
  Serious: Yes (Other)
  Sender: FDA-Public Use
  Company Number: US-GLAXOSMITHKLINE-A1045943A

PATIENT
  Age: 53 Year
  Sex: Female

DRUGS (12)
  1. ADVAIR [Suspect]
     Indication: ASTHMA
     Dosage: 1PUFF TWICE PER DAY
     Route: 055
     Dates: start: 20130929
  2. CHANTIX [Suspect]
     Indication: EX-TOBACCO USER
     Dosage: .5MG TWICE PER DAY
     Route: 048
     Dates: start: 20131011
  3. PRO-AIR [Concomitant]
  4. LEVOTHYROXINE [Concomitant]
  5. CLONAZEPAM [Concomitant]
  6. SOMA [Concomitant]
  7. AMLODIPINE [Concomitant]
  8. AMLODIPINE BESILATE + ATORVASTATIN CALCIUM [Concomitant]
  9. NORCO [Concomitant]
  10. FLUTICASONE PROPIONATE [Concomitant]
  11. CETIRIZINE [Concomitant]
  12. MULTIVITAMIN [Concomitant]

REACTIONS (11)
  - Candida infection [Unknown]
  - Oropharyngeal blistering [Unknown]
  - Dysgeusia [Not Recovered/Not Resolved]
  - Dry mouth [Not Recovered/Not Resolved]
  - Tongue disorder [Not Recovered/Not Resolved]
  - Lymphadenopathy [Not Recovered/Not Resolved]
  - Oral mucosal eruption [Not Recovered/Not Resolved]
  - Throat lesion [Not Recovered/Not Resolved]
  - Oral mucosal blistering [Unknown]
  - Tongue blistering [Unknown]
  - Drug interaction [Unknown]
